FAERS Safety Report 7036897 (Version 5)
Quarter: 2015Q4

REPORT INFORMATION
  Report Type: Spontaneous
  Country: AU (occurrence: AU)
  Receive Date: 20090630
  Receipt Date: 20151029
  Transmission Date: 20160305
  Serious: Yes (Hospitalization)
  Sender: FDA-Public Use
  Company Number: AU-PFIZER INC-2009229216

PATIENT
  Age: 30 Year
  Sex: Female
  Weight: 70 kg

DRUGS (1)
  1. CHAMPIX [Suspect]
     Active Substance: VARENICLINE TARTRATE
     Indication: SMOKING CESSATION THERAPY
     Dosage: INITIATION PACK
     Route: 048
     Dates: start: 20090501, end: 20090530

REACTIONS (14)
  - Confusional state [Unknown]
  - Mood swings [Unknown]
  - Nausea [Recovered/Resolved]
  - Tremor [Recovered/Resolved]
  - Formication [Unknown]
  - Heart rate increased [Unknown]
  - Weight decreased [Unknown]
  - Anxiety [Recovered/Resolved]
  - Anger [Unknown]
  - Paranoia [Unknown]
  - Crying [Unknown]
  - Hallucination [Unknown]
  - Withdrawal syndrome [Unknown]
  - Glucose tolerance impaired [Unknown]

NARRATIVE: CASE EVENT DATE: 20090520
